FAERS Safety Report 17668372 (Version 1)
Quarter: 2020Q2

REPORT INFORMATION
  Report Type: Spontaneous
  Country: US (occurrence: US)
  Receive Date: 20200414
  Receipt Date: 20200414
  Transmission Date: 20200713
  Serious: No
  Sender: FDA-Public Use
  Company Number: US-ACCORD-170120

PATIENT
  Age: 51 Year
  Sex: Male
  Weight: 104.18 kg

DRUGS (2)
  1. DAPTOMYCIN ACCORD [Suspect]
     Active Substance: DAPTOMYCIN
     Indication: INFECTION
     Dosage: ONCE A DAY (500 MG PLUS 350 MG)
     Route: 042
     Dates: start: 20200105, end: 20200110
  2. INVANZ [Concomitant]
     Active Substance: ERTAPENEM SODIUM
     Indication: ARTHRITIS INFECTIVE
     Route: 042
     Dates: start: 20200110, end: 20200114

REACTIONS (3)
  - Tremor [Recovered/Resolved]
  - Nasopharyngitis [Unknown]
  - Chills [Recovered/Resolved]

NARRATIVE: CASE EVENT DATE: 20200110
